FAERS Safety Report 8282947-1 (Version None)
Quarter: 2012Q2

REPORT INFORMATION
  Report Type: 
  Country: None (occurrence: None)
  Receive Date: 20120413
  Receipt Date: 20120330
  Transmission Date: 20120825
  Serious: Yes (Disabling)
  Sender: FDA-Public Use
  Company Number: JP-ROCHE-1058353

PATIENT
  Age: 83 Year
  Sex: Female

DRUGS (3)
  1. ALTEPLASE [Suspect]
     Indication: EMBOLIC STROKE
     Route: 042
     Dates: start: 20111213, end: 20111213
  2. GLYCEOL [Concomitant]
     Route: 041
     Dates: start: 20111215, end: 20111230
  3. RADICUT [Concomitant]
     Route: 041
     Dates: start: 20111213, end: 20111226

REACTIONS (2)
  - CEREBRAL INFARCTION [None]
  - BRAIN HERNIATION [None]
